FAERS Safety Report 8188456-2 (Version None)
Quarter: 2012Q1

REPORT INFORMATION
  Report Type: 
  Country: None (occurrence: None)
  Receive Date: 20120306
  Receipt Date: 20120228
  Transmission Date: 20120608
  Serious: Yes (Life-Threatening, Other)
  Sender: FDA-Public Use
  Company Number: PHHY2012FR017443

PATIENT
  Age: 60 Year
  Sex: Male

DRUGS (12)
  1. MYFORTIC [Suspect]
     Dosage: 750 MG, TID
     Route: 048
     Dates: start: 20110301, end: 20110601
  2. CERTICAN [Suspect]
     Dosage: 0.5 MG, BID
     Route: 048
     Dates: start: 20110601
  3. VALGANCICLOVIR [Suspect]
     Indication: CYTOMEGALOVIRUS INFECTION
     Dates: end: 20110901
  4. MABTHERA [Suspect]
     Route: 042
     Dates: start: 20110701
  5. GRANOCYTE [Concomitant]
  6. NEORAL [Suspect]
     Dosage: 100 MG, UNK
     Route: 048
     Dates: end: 20110601
  7. CERTICAN [Suspect]
     Dosage: 0.25 MG, BID
     Route: 048
     Dates: start: 20110729, end: 20110801
  8. MABCAMPATH [Suspect]
     Route: 042
     Dates: start: 20110729
  9. MABCAMPATH [Suspect]
     Route: 042
     Dates: start: 20110811
  10. PROGRAF [Suspect]
     Indication: GRAFT VERSUS HOST DISEASE IN SKIN
  11. NEORAL [Suspect]
     Dosage: 200 MG, UNK
     Route: 048
     Dates: start: 20110301
  12. VISTIDE [Concomitant]
     Indication: BK VIRUS INFECTION

REACTIONS (15)
  - PYREXIA [None]
  - B-CELL LYMPHOMA [None]
  - CYTOMEGALOVIRUS INFECTION [None]
  - GRAFT VERSUS HOST DISEASE IN INTESTINE [None]
  - DIARRHOEA [None]
  - BK VIRUS INFECTION [None]
  - GRAFT VERSUS HOST DISEASE IN SKIN [None]
  - PANCYTOPENIA [None]
  - PROCTITIS HERPES [None]
  - HEPATIC MASS [None]
  - PSEUDOMEMBRANOUS COLITIS [None]
  - MEDIASTINAL MASS [None]
  - EPSTEIN-BARR VIRUS INFECTION [None]
  - CLOSTRIDIAL INFECTION [None]
  - DECREASED APPETITE [None]
